FAERS Safety Report 6543730-8 (Version None)
Quarter: 2010Q1

REPORT INFORMATION
  Report Type: 
  Country: None (occurrence: None)
  Receive Date: 20100120
  Receipt Date: 20100111
  Transmission Date: 20100710
  Serious: Yes (Hospitalization)
  Sender: FDA-Public Use
  Company Number: FR-ASTRAZENECA-2010SE01309

PATIENT
  Age: 62 Year
  Sex: Female

DRUGS (15)
  1. FOSCAVIR [Suspect]
     Route: 042
     Dates: start: 20091001, end: 20091101
  2. FOSCAVIR [Suspect]
     Route: 042
     Dates: start: 20091127
  3. ADVAGRAF [Concomitant]
     Dosage: 1 MG, 2.5 CAPSULES DAILY
     Route: 048
  4. CERTICAN [Concomitant]
  5. CORTANCYL [Concomitant]
     Route: 048
  6. PRAVASTATIN [Concomitant]
     Route: 048
  7. KARDEGIC [Concomitant]
     Route: 048
  8. KEPPRA [Concomitant]
     Dosage: 500 MG IN THE MORNING, 1000 MG IN THE EVENING
     Route: 048
  9. SKENAN LP [Concomitant]
  10. VITAMIN B-12 [Concomitant]
     Dosage: 1 MG/2 ML, 1 DF EVERY MONTH
     Route: 058
  11. CALCIUM [Concomitant]
     Route: 048
  12. VITAMIN K1 [Concomitant]
     Dosage: 10 MG/ML, 1 DF WEEKLY
  13. DIFFU-K [Concomitant]
  14. UVEDOSE [Concomitant]
     Dosage: 2.5 MG/2 ML, 1 DF DAILY
     Route: 048
  15. MAGNE B6 [Concomitant]
     Dosage: 2 TABLETS THREE TIMES DAILY

REACTIONS (4)
  - HYPOCALCAEMIA [None]
  - HYPOMAGNESAEMIA [None]
  - PARAESTHESIA [None]
  - RENAL TUBULAR DISORDER [None]
